FAERS Safety Report 7068676-0 (Version None)
Quarter: 2010Q4

REPORT INFORMATION
  Report Type: 
  Country: None (occurrence: None)
  Receive Date: 20101027
  Receipt Date: 20101027
  Transmission Date: 20110411
  Serious: Yes (Death)
  Sender: FDA-Public Use
  Company Number: None

PATIENT
  Age: 48 Year
  Sex: Male
  Weight: 83.9154 kg

DRUGS (2)
  1. CYMBALTA [Suspect]
     Indication: ANXIETY
     Dosage: 1 DAILY PO
     Route: 048
     Dates: start: 20100614, end: 20100628
  2. CYMBALTA [Suspect]
     Indication: ANXIETY
     Dosage: 1 DAILY PO
     Route: 048
     Dates: start: 20100629, end: 20100706

REACTIONS (1)
  - GUN SHOT WOUND [None]
